FAERS Safety Report 7527513-8 (Version None)
Quarter: 2011Q2

REPORT INFORMATION
  Report Type: 
  Country: None (occurrence: None)
  Receive Date: 20110607
  Receipt Date: 20110527
  Transmission Date: 20111010
  Serious: Yes (Hospitalization, Other)
  Sender: FDA-Public Use
  Company Number: JP-JNJFOC-20110201461

PATIENT
  Sex: Female
  Weight: 50 kg

DRUGS (10)
  1. INVEGA [Suspect]
     Indication: SCHIZOPHRENIA
     Route: 048
     Dates: start: 20110121, end: 20110125
  2. FLUNITRAZEPAM [Concomitant]
     Route: 048
     Dates: start: 20100421
  3. URSO 250 [Concomitant]
     Route: 048
     Dates: start: 20100918, end: 20110303
  4. AKINETON [Concomitant]
     Route: 048
     Dates: start: 20100809, end: 20110308
  5. CARBAMAZEPINE [Concomitant]
     Indication: PRODUCT USED FOR UNKNOWN INDICATION
     Route: 048
     Dates: start: 20100907
  6. ZYPREXA [Concomitant]
     Indication: PRODUCT USED FOR UNKNOWN INDICATION
     Route: 048
     Dates: start: 20110105
  7. LEVOMEPROMAZINE MALEATE [Concomitant]
     Indication: PRODUCT USED FOR UNKNOWN INDICATION
     Route: 048
     Dates: start: 20101124
  8. MAGNESIUM OXIDE [Concomitant]
     Route: 048
     Dates: start: 20100222
  9. PANVITAN [Concomitant]
     Route: 048
     Dates: start: 20101115
  10. INVEGA [Suspect]
     Route: 048
     Dates: start: 20110126, end: 20110129

REACTIONS (2)
  - VOMITING [None]
  - HEPATIC FUNCTION ABNORMAL [None]
